FAERS Safety Report 4838235-6 (Version None)
Quarter: 2005Q4

REPORT INFORMATION
  Report Type: 
  Country: None (occurrence: None)
  Receive Date: 20051128
  Receipt Date: 20051107
  Transmission Date: 20060501
  Serious: Yes (Hospitalization, Other)
  Sender: FDA-Public Use
  Company Number: US-MERCK-0511USA00917

PATIENT
  Age: 45 Year
  Sex: Female

DRUGS (1)
  1. VIOXX [Suspect]
     Indication: ARTHRITIS
     Route: 048
     Dates: start: 20030101, end: 20041001

REACTIONS (7)
  - ATRIAL TACHYCARDIA [None]
  - FALL [None]
  - GASTRIC DISORDER [None]
  - HEPATIC FUNCTION ABNORMAL [None]
  - PALPITATIONS [None]
  - SKIN LACERATION [None]
  - SYNCOPE [None]
